FAERS Safety Report 8769564 (Version 1)
Quarter: 2012Q4

REPORT INFORMATION
  Report Type: 
  Country: US (occurrence: US)
  Receive Date: 20120905
  Receipt Date: 20120905
  Transmission Date: 20130627
  Serious: Yes (Hospitalization)
  Sender: FDA-Public Use
  Company Number: US-BAYER-2012-089676

PATIENT
  Age: 24 Year
  Sex: Female
  Weight: 47.6 kg

DRUGS (4)
  1. YASMIN [Suspect]
  2. OCELLA [Suspect]
  3. COLACE [Concomitant]
  4. VICODIN [Concomitant]

REACTIONS (5)
  - Deep vein thrombosis [None]
  - Pelvic venous thrombosis [None]
  - Pulmonary embolism [None]
  - Pelvic venous thrombosis [None]
  - Deep vein thrombosis [None]
